FAERS Safety Report 21344957 (Version 1)
Quarter: 2022Q3

REPORT INFORMATION
  Report Type: Spontaneous
  Country: FR (occurrence: None)
  Receive Date: 20220916
  Receipt Date: 20220916
  Transmission Date: 20221026
  Serious: Yes (Life-Threatening)
  Sender: FDA-Public Use
  Company Number: 2022A318154

PATIENT
  Age: 25 Year
  Sex: Female
  Weight: 52 kg

DRUGS (4)
  1. QUETIAPINE FUMARATE [Suspect]
     Active Substance: QUETIAPINE FUMARATE
     Indication: Suicide attempt
     Dosage: 3000 MG60.0DF ONCE/SINGLE ADMINISTRATION
     Route: 048
     Dates: start: 20160314
  2. PAROXETINE HYDROCHLORIDE [Suspect]
     Active Substance: PAROXETINE HYDROCHLORIDE
     Indication: Suicide attempt
     Dosage: 28 TABS OF 20 MG560.0MG ONCE/SINGLE ADMINISTRATION
     Route: 048
     Dates: start: 20160314
  3. LORMETAZEPAM [Suspect]
     Active Substance: LORMETAZEPAM
     Indication: Suicide attempt
     Dosage: 14 TABS OF 8 MG112.0MG ONCE/SINGLE ADMINISTRATION
     Route: 048
     Dates: start: 20160314
  4. ZOLPIDEM [Suspect]
     Active Substance: ZOLPIDEM TARTRATE
     Indication: Suicide attempt
     Dosage: 28 TABS OF 10 MG280.0MG ONCE/SINGLE ADMINISTRATION
     Route: 048
     Dates: start: 20160314

REACTIONS (2)
  - Poisoning deliberate [Recovered/Resolved]
  - Anticholinergic syndrome [Recovered/Resolved]

NARRATIVE: CASE EVENT DATE: 20160314
